FAERS Safety Report 8353927-2 (Version None)
Quarter: 2012Q2

REPORT INFORMATION
  Report Type: 
  Country: None (occurrence: None)
  Receive Date: 20120511
  Receipt Date: 20120503
  Transmission Date: 20120825
  Serious: Yes (Hospitalization)
  Sender: FDA-Public Use
  Company Number: FR-ABBOTT-12P-056-0928304-01

PATIENT
  Age: 25 Year
  Sex: Female

DRUGS (5)
  1. ACETAMINOPHEN W/ PROPOXYPHENE HCL [Concomitant]
     Indication: ABDOMINAL PAIN
     Dates: start: 20090101
  2. ACETAMINOPHEN W/ PROPOXYPHENE HCL [Concomitant]
     Indication: CROHN'S DISEASE
  3. ALUMINUM HYDROXIDE AND MAGNESIUM TRISILICATE [Concomitant]
     Indication: CROHN'S DISEASE
  4. ALUMINUM HYDROXIDE AND MAGNESIUM TRISILICATE [Concomitant]
     Indication: DIARRHOEA
     Dates: start: 20090303
  5. HUMIRA [Suspect]
     Indication: CROHN'S DISEASE
     Route: 058
     Dates: start: 20051216, end: 20091126

REACTIONS (1)
  - INTESTINAL OBSTRUCTION [None]
